FAERS Safety Report 7026756-X (Version None)
Quarter: 2010Q4

REPORT INFORMATION
  Report Type: 
  Country: None (occurrence: None)
  Receive Date: 20101004
  Receipt Date: 20100924
  Transmission Date: 20110411
  Serious: No
  Sender: FDA-Public Use
  Company Number: US-B.I. PHARMACEUTICALS,INC./RIDGEFIELD-2010-BP-10803BP

PATIENT
  Age: 75 Year
  Sex: Female

DRUGS (4)
  1. MICARDIS [Suspect]
     Indication: HYPERTENSION
     Dosage: 40 MG
     Route: 048
     Dates: start: 20090301
  2. SIMVASTATIN [Suspect]
     Indication: BLOOD CHOLESTEROL INCREASED
     Dates: end: 20100701
  3. ALENDRONATE SODIUM [Suspect]
     Indication: OSTEOPOROSIS
     Dates: end: 20100701
  4. CALCIUM [Concomitant]
     Indication: OSTEOPOROSIS

REACTIONS (1)
  - ALOPECIA [None]
